FAERS Safety Report 18263965 (Version 1)
Quarter: 2020Q3

REPORT INFORMATION
  Report Type: Spontaneous
  Country: US (occurrence: US)
  Receive Date: 20200914
  Receipt Date: 20200914
  Transmission Date: 20201103
  Serious: No
  Sender: FDA-Public Use
  Company Number: US-PFIZER INC-2020353649

PATIENT
  Age: 74 Year
  Sex: Female

DRUGS (2)
  1. LIPITOR [Suspect]
     Active Substance: ATORVASTATIN CALCIUM
     Dosage: 10 MG, DAILY (1 TABLET BY MOUTH AT THAT TIME) DAYS SUPPLY=90 QTY=90)
     Route: 048
  2. METFORMIN ER [Suspect]
     Active Substance: METFORMIN HYDROCHLORIDE
     Dosage: 1000 MG, 2X/DAY(TAKES 2 TABLET BY MOUTH TWICE A DAY)
     Route: 048

REACTIONS (2)
  - Mydriasis [Unknown]
  - Dizziness [Recovered/Resolved]
